FAERS Safety Report 5353609-5 (Version None)
Quarter: 2007Q2

REPORT INFORMATION
  Report Type: 
  Country: None (occurrence: None)
  Receive Date: 20070612
  Receipt Date: 20070322
  Transmission Date: 20071010
  Serious: No
  Sender: FDA-Public Use
  Company Number: US-BAUSCH-2007BL000948

PATIENT
  Age: 72 Year
  Sex: Female

DRUGS (3)
  1. BRIMONIDINE TARTRATE [Suspect]
     Indication: GLAUCOMA
     Route: 047
     Dates: start: 20060322, end: 20070320
  2. ACULAR ^ALLERGAN^ [Concomitant]
     Indication: RETINAL VASCULAR DISORDER
  3. COSOPT [Concomitant]

REACTIONS (2)
  - DRUG HYPERSENSITIVITY [None]
  - EYE INFECTION [None]
